FAERS Safety Report 21872494 (Version 1)
Quarter: 2023Q1

REPORT INFORMATION
  Report Type: Spontaneous
  Country: US (occurrence: None)
  Receive Date: 20230114
  Receipt Date: 20230114
  Transmission Date: 20230418
  Serious: Yes (Hospitalization)
  Sender: FDA-Public Use
  Company Number: None

PATIENT
  Sex: Male
  Weight: 89.3 kg

DRUGS (2)
  1. CARBOPLATIN [Suspect]
     Active Substance: CARBOPLATIN
     Dates: end: 20221121
  2. TAXOL [Suspect]
     Active Substance: PACLITAXEL
     Dates: end: 20221121

REACTIONS (7)
  - Pulmonary embolism [None]
  - Haemodynamic instability [None]
  - Respiratory failure [None]
  - Culture positive [None]
  - Haemophilus infection [None]
  - Septic shock [None]
  - Pneumonia haemophilus [None]

NARRATIVE: CASE EVENT DATE: 20230106
